FAERS Safety Report 9356199 (Version 1)
Quarter: 2013Q2

REPORT INFORMATION
  Report Type: Spontaneous
  Country: GB (occurrence: GB)
  Receive Date: 20130619
  Receipt Date: 20130619
  Transmission Date: 20140414
  Serious: Yes (Other)
  Sender: FDA-Public Use
  Company Number: GB-TEVA-413291ISR

PATIENT
  Age: 34 Year
  Sex: Female
  Weight: 73 kg

DRUGS (2)
  1. TRIMETHOPRIM [Suspect]
     Indication: URINARY TRACT INFECTION
     Dosage: ONE TABLET TWICE DAILY
     Route: 048
     Dates: start: 20130520, end: 20130524
  2. SERTRALINE [Concomitant]

REACTIONS (1)
  - Flatulence [Recovered/Resolved]
